FAERS Safety Report 5576145-X (Version None)
Quarter: 2007Q4

REPORT INFORMATION
  Report Type: 
  Country: None (occurrence: None)
  Receive Date: 20071226
  Receipt Date: 20071210
  Transmission Date: 20080405
  Serious: Yes (Death, Hospitalization)
  Sender: FDA-Public Use
  Company Number: ADE2007-0083

PATIENT
  Age: 75 Year
  Sex: Female

DRUGS (3)
  1. SERTRALINE HCL [Suspect]
     Indication: DEPRESSION
     Dosage: 50 MG - 2 X DAILY - PO
     Route: 048
  2. CARBAMAZEPINE [Suspect]
     Indication: BIPOLAR DISORDER
     Dosage: 200 MG - 2 D DAILY - PO
     Route: 048
  3. PERICYAZINE [Suspect]
     Dosage: 5 MG- 3X DAILY- PO
     Route: 048

REACTIONS (7)
  - ACUTE RESPIRATORY DISTRESS SYNDROME [None]
  - HYPOTENSION [None]
  - LOBAR PNEUMONIA [None]
  - LUNG DISORDER [None]
  - MULTI-ORGAN FAILURE [None]
  - PULMONARY OEDEMA [None]
  - RESPIRATORY FAILURE [None]
